FAERS Safety Report 18417633 (Version 1)
Quarter: 2020Q4

REPORT INFORMATION
  Report Type: Spontaneous
  Country: US (occurrence: US)
  Receive Date: 20201022
  Receipt Date: 20201022
  Transmission Date: 20210114
  Serious: No
  Sender: FDA-Public Use
  Company Number: 2020SGN02731

PATIENT
  Sex: Female

DRUGS (1)
  1. TUKYSA [Suspect]
     Active Substance: TUCATINIB
     Indication: BREAST CANCER FEMALE
     Dosage: UNK

REACTIONS (7)
  - Headache [Recovered/Resolved]
  - Nausea [Recovered/Resolved]
  - Diarrhoea [Unknown]
  - Haemoglobin decreased [Recovering/Resolving]
  - White blood cell count decreased [Unknown]
  - Decreased appetite [Recovered/Resolved]
  - Haematocrit decreased [Unknown]
